FAERS Safety Report 8727217 (Version 1)
Quarter: 2012Q4

REPORT INFORMATION
  Report Type: 
  Country: US (occurrence: US)
  Receive Date: 20120914
  Receipt Date: 20120914
  Transmission Date: 20130627
  Serious: No
  Sender: FDA-Public Use
  Company Number: US-ASTRAZENECA-2012SE55372

PATIENT
  Age: 54 Year
  Sex: Female

DRUGS (2)
  1. SEROQUEL [Suspect]
     Indication: BIPOLAR DISORDER
     Route: 048
  2. SEROQUEL [Suspect]
     Indication: BIPOLAR DISORDER
     Dosage: 300 MG BROKE THEM IN HALF
     Route: 048

REACTIONS (5)
  - Drug effect increased [Unknown]
  - Euphoric mood [Unknown]
  - Somnolence [Unknown]
  - Lethargy [Unknown]
  - Intentional drug misuse [Unknown]
